FAERS Safety Report 8887252 (Version 1)
Quarter: 2012Q4

REPORT INFORMATION
  Report Type: Report from Study
  Country: CA (occurrence: CA)
  Receive Date: 20121101
  Receipt Date: 20121101
  Transmission Date: 20130627
  Serious: Yes (Hospitalization, Other)
  Sender: FDA-Public Use
  Company Number: CA-ROCHE-1110908

PATIENT
  Age: 67 Year
  Sex: Female
  Weight: 77.18 kg

DRUGS (17)
  1. TOCILIZUMAB [Suspect]
     Indication: RHEUMATOID ARTHRITIS
     Route: 042
     Dates: start: 20110803
  2. ATACAND [Concomitant]
  3. ACTONEL [Concomitant]
  4. VITAMIN C [Concomitant]
  5. VITAMIN E [Concomitant]
  6. OMEGA 3 [Concomitant]
  7. PRAVASTATIN [Concomitant]
  8. ASA [Concomitant]
  9. CLONAZEPAM [Concomitant]
  10. PREDNISONE [Concomitant]
  11. EFFEXOR [Concomitant]
  12. DIAZEPAM [Concomitant]
  13. ZYPREXA [Concomitant]
  14. RANITIDINE [Concomitant]
  15. HYDROXYCHLOROQUINE [Concomitant]
  16. TYLENOL [Concomitant]
  17. ADVIL [Concomitant]

REACTIONS (6)
  - Dyspnoea [Not Recovered/Not Resolved]
  - Myalgia [Not Recovered/Not Resolved]
  - Sinus headache [Not Recovered/Not Resolved]
  - Fatigue [Not Recovered/Not Resolved]
  - Cellulitis [Recovering/Resolving]
  - Haemoglobin decreased [Not Recovered/Not Resolved]
